FAERS Safety Report 4732581-2 (Version None)
Quarter: 2005Q3

REPORT INFORMATION
  Report Type: 
  Country: None (occurrence: None)
  Receive Date: 20050803
  Receipt Date: 20050727
  Transmission Date: 20060218
  Serious: Yes (Hospitalization)
  Sender: FDA-Public Use
  Company Number: 2005UW11126

PATIENT
  Age: 12178 Day
  Sex: Male
  Weight: 184.1 kg

DRUGS (3)
  1. SEROQUEL [Suspect]
     Indication: SCHIZOPHRENIA
     Route: 048
     Dates: end: 20050629
  2. ATOMOXETINE HYDROCHLORIDE [Suspect]
     Indication: SCHIZOPHRENIA
     Dates: start: 20050520, end: 20050629
  3. HYDROCHLOROTHIAZIDE [Concomitant]
     Indication: HYPERTENSION
     Dates: start: 20040801

REACTIONS (4)
  - ANXIETY [None]
  - CONDITION AGGRAVATED [None]
  - PSYCHOTIC DISORDER [None]
  - SLEEP DISORDER [None]
